FAERS Safety Report 21290938 (Version 1)
Quarter: 2022Q3

REPORT INFORMATION
  Report Type: Spontaneous
  Country: US (occurrence: US)
  Receive Date: 20220903
  Receipt Date: 20220903
  Transmission Date: 20221026
  Serious: Yes (Other)
  Sender: FDA-Public Use
  Company Number: US-SA-SAC20220901000365

PATIENT
  Sex: Male
  Weight: 86.2 kg

DRUGS (12)
  1. DUPIXENT [Suspect]
     Active Substance: DUPILUMAB
     Indication: Dermatitis atopic
     Dosage: 300 MG, QOW
     Route: 058
     Dates: start: 202203
  2. DUPIXENT [Suspect]
     Active Substance: DUPILUMAB
     Indication: Nasal polyps
  3. ZINC [Concomitant]
     Active Substance: ZINC
  4. VITAMIN C [Concomitant]
     Active Substance: ASCORBIC ACID
  5. VITAMIN B1 [Concomitant]
     Active Substance: THIAMINE HYDROCHLORIDE
  6. VITAMIN D NOS [Concomitant]
     Active Substance: VITAMIN D NOS
  7. ZYRTEC [Concomitant]
     Active Substance: CETIRIZINE HYDROCHLORIDE
  8. ALBUTEROL SULFATE [Concomitant]
     Active Substance: ALBUTEROL SULFATE
  9. MOMETASONE FUROATE [Concomitant]
     Active Substance: MOMETASONE FUROATE
  10. RISPERIDONE [Concomitant]
     Active Substance: RISPERIDONE
  11. METHYLPHENIDATE [Concomitant]
     Active Substance: METHYLPHENIDATE
  12. LEVOTHYROXINE [Concomitant]
     Active Substance: LEVOTHYROXINE

REACTIONS (3)
  - Throat cancer [Unknown]
  - Oropharyngeal pain [Unknown]
  - Product use in unapproved indication [Unknown]
